FAERS Safety Report 11113111 (Version 1)
Quarter: 2015Q2

REPORT INFORMATION
  Report Type: Spontaneous
  Country: US (occurrence: None)
  Receive Date: 20150504
  Receipt Date: 20150504
  Transmission Date: 20150821
  Serious: Yes (Hospitalization)
  Sender: FDA-Public Use
  Company Number: 1525043

PATIENT
  Sex: Male

DRUGS (2)
  1. AVASTIN [Suspect]
     Active Substance: BEVACIZUMAB
     Indication: COLORECTAL CANCER
     Dosage: STOPPED TAKING IT 2 WEEKS, UNKNOWN
     Dates: start: 2014
  2. VECTIBIX (PANITUMUMAB) [Concomitant]

REACTIONS (3)
  - Haemorrhage [None]
  - Drug ineffective [None]
  - Malignant neoplasm progression [None]
